FAERS Safety Report 9857464 (Version 2)
Quarter: 2014Q1

REPORT INFORMATION
  Report Type: Report from Study
  Country: US (occurrence: US)
  Receive Date: 20140131
  Receipt Date: 20140311
  Transmission Date: 20141002
  Serious: Yes (Hospitalization)
  Sender: FDA-Public Use
  Company Number: US-ROCHE-1341789

PATIENT
  Age: 61 Year
  Sex: Male
  Weight: 76 kg

DRUGS (9)
  1. XOLAIR [Suspect]
     Indication: ASTHMA
     Route: 058
  2. PREDNISONE [Concomitant]
     Route: 065
  3. ADVAIR [Concomitant]
     Route: 065
     Dates: start: 20130208
  4. ADVAIR [Concomitant]
     Route: 065
     Dates: start: 20121219
  5. ALBUTEROL [Concomitant]
     Dosage: 2.5 MG/3 ML (0.083%)
     Route: 065
     Dates: start: 20120326
  6. ALBUTEROL [Concomitant]
     Dosage: INHALE 2 PUFF BY INHALATION ROUTE EVERY FOUR HOUR AS NEEDED FOR 30 DAYS
     Route: 065
     Dates: start: 20121216
  7. SINGULAIR [Concomitant]
     Dosage: AT BEDTIME FOR 30 DAYS
     Route: 048
     Dates: start: 20131226
  8. OMEPRAZOLE [Concomitant]
     Dosage: BEFORE MEAL
     Route: 048
     Dates: start: 20121219
  9. AZITHROMYCIN [Concomitant]
     Dosage: AT BEDTIME
     Route: 048

REACTIONS (8)
  - Loss of consciousness [Unknown]
  - Chest discomfort [Unknown]
  - Wheezing [Unknown]
  - Chest pain [Unknown]
  - Myalgia [Unknown]
  - Arthralgia [Unknown]
  - Dyspnoea [Unknown]
  - Cough [Unknown]
